FAERS Safety Report 13822667 (Version 1)
Quarter: 2017Q3

REPORT INFORMATION
  Report Type: Spontaneous
  Country: HR (occurrence: HR)
  Receive Date: 20170801
  Receipt Date: 20170801
  Transmission Date: 20171127
  Serious: Yes (Other)
  Sender: FDA-Public Use
  Company Number: HR-PFIZER INC-2017329424

PATIENT
  Age: 54 Year
  Sex: Female

DRUGS (5)
  1. ZIPRASIDONE HCL [Suspect]
     Active Substance: ZIPRASIDONE HYDROCHLORIDE
     Dosage: 40 MG
     Route: 048
     Dates: start: 20170530, end: 20170530
  2. LOQUEN [Suspect]
     Active Substance: QUETIAPINE FUMARATE
     Dosage: 200 MG
     Route: 048
     Dates: start: 20170530, end: 20170530
  3. SERPENTIL /01588502/ [Suspect]
     Active Substance: ESCITALOPRAM OXALATE
     Dosage: 10 MG
     Route: 048
     Dates: start: 20170530, end: 20170530
  4. MIRZATEN [Suspect]
     Active Substance: MIRTAZAPINE
     Dosage: 30 MG
     Route: 048
     Dates: start: 20170530, end: 20170530
  5. DIAZEPAM. [Suspect]
     Active Substance: DIAZEPAM
     Dosage: UNK
     Route: 048
     Dates: start: 20170530, end: 20170530

REACTIONS (2)
  - Somnolence [Unknown]
  - Suicide attempt [Unknown]

NARRATIVE: CASE EVENT DATE: 20170530
